FAERS Safety Report 22540420 (Version 1)
Quarter: 2023Q2

REPORT INFORMATION
  Report Type: Spontaneous
  Country: US (occurrence: US)
  Receive Date: 20230609
  Receipt Date: 20230609
  Transmission Date: 20230722
  Serious: No
  Sender: FDA-Public Use
  Company Number: US-SA-SAC20230609000400

PATIENT
  Sex: Male
  Weight: 86.18 kg

DRUGS (9)
  1. DUPIXENT [Suspect]
     Active Substance: DUPILUMAB
     Indication: Dermatitis atopic
     Dosage: 300 MG, QOW
     Route: 058
  2. HYDROXYZINE HYDROCHLORIDE [Concomitant]
     Active Substance: HYDROXYZINE HYDROCHLORIDE
  3. LEVOCETIRIZINE DIHYDROCHLORIDE [Concomitant]
     Active Substance: LEVOCETIRIZINE DIHYDROCHLORIDE
  4. TACROLIMUS [Concomitant]
     Active Substance: TACROLIMUS
  5. LOSARTAN POTASSIUM [Concomitant]
     Active Substance: LOSARTAN POTASSIUM
  6. ALLOPURINOL [Concomitant]
     Active Substance: ALLOPURINOL
  7. SIMVASTATIN [Concomitant]
     Active Substance: SIMVASTATIN
  8. KETOCONAZOLE [Concomitant]
     Active Substance: KETOCONAZOLE
  9. PREMARIN [Concomitant]
     Active Substance: ESTROGENS, CONJUGATED

REACTIONS (1)
  - Drug ineffective [Unknown]
